FAERS Safety Report 9162224 (Version 1)
Quarter: 2013Q1

REPORT INFORMATION
  Report Type: Spontaneous
  Country: US (occurrence: US)
  Receive Date: 20130314
  Receipt Date: 20130314
  Transmission Date: 20140127
  Serious: Yes (Hospitalization)
  Sender: FDA-Public Use
  Company Number: US-BAYER-2013-028419

PATIENT
  Age: 38 Year
  Sex: Female

DRUGS (4)
  1. OCELLA [Suspect]
  2. YASMIN [Suspect]
  3. RALTEGRAVIR [Concomitant]
     Dosage: 400 MG, UNK
     Route: 048
  4. EPZICOM [Concomitant]
     Route: 048

REACTIONS (2)
  - Mesenteric vein thrombosis [None]
  - Portal vein thrombosis [None]
